FAERS Safety Report 8461702-3 (Version None)
Quarter: 2012Q2

REPORT INFORMATION
  Report Type: 
  Country: None (occurrence: None)
  Receive Date: 20120625
  Receipt Date: 20120620
  Transmission Date: 20120825
  Serious: Yes (Other)
  Sender: FDA-Public Use
  Company Number: PHHY2012BR053358

PATIENT
  Sex: Female

DRUGS (3)
  1. HYGROTON [Suspect]
  2. DIOVAN [Suspect]
     Dosage: 1 DF, DAILY IN THE MORNING (80 MG)
  3. DIOVAN [Suspect]
     Dosage: 2 DF, (1 IN THE MORNING AND 1 AT NIGHT)

REACTIONS (7)
  - RETINAL VASCULAR OCCLUSION [None]
  - VISION BLURRED [None]
  - HEADACHE [None]
  - VISUAL IMPAIRMENT [None]
  - EYE PAIN [None]
  - BLOOD PRESSURE FLUCTUATION [None]
  - DIZZINESS [None]
